FAERS Safety Report 9551492 (Version 1)
Quarter: 2013Q2

REPORT INFORMATION
  Report Type: Spontaneous
  Country: US (occurrence: None)
  Receive Date: 20130627
  Receipt Date: 20130627
  Transmission Date: 20140414
  Serious: Yes (Other)
  Sender: FDA-Public Use
  Company Number: 1000044158

PATIENT
  Age: 65 Year
  Sex: Male

DRUGS (10)
  1. LINZESS (LINACLOTIDE) (145 MICROGRAM, CAPSULES) [Suspect]
     Indication: CONSTIPATION
     Dosage: 1 IN 1 D
     Route: 048
     Dates: start: 20130404
  2. TEKTURNA (ALISKIREN FUMARATE) (ALIKIREN FUMARATE) [Concomitant]
  3. AMLODIPINE (AMLODIPINE) (AMLODIPINE) [Concomitant]
  4. BYSTOLIC (NEBIVOLOL HYDROCHLORIDE) (NEBIVOLOL HYDROCHLORIDE) [Concomitant]
  5. SIMVASTATIN (SIMVASTATIN) ( SIMVASTATIN) [Concomitant]
  6. FINASTERIDE (FINASTERIDE) (FINASTERIDE) [Concomitant]
  7. TAMSULOSIN (TAMSULOSIN) (TAMSULOSIN) [Concomitant]
  8. ASA (ACETYLSALICYLIC ACID) (ACETYLSALICYLIC ACID) [Concomitant]
  9. VIT D (ERGOCALCIFEROL) (ERGOCALCIFEROL) [Concomitant]
  10. FIBER (POLYCARBOPHIL CALCIUM) [Concomitant]

REACTIONS (2)
  - Diarrhoea [None]
  - Flatulence [None]
